FAERS Safety Report 25681546 (Version 1)
Quarter: 2025Q3

REPORT INFORMATION
  Report Type: Spontaneous
  Country: AU (occurrence: AU)
  Receive Date: 20250814
  Receipt Date: 20250814
  Transmission Date: 20251021
  Serious: Yes (Hospitalization, Other)
  Sender: RANBAXY
  Company Number: AU-SUN PHARMACEUTICAL INDUSTRIES LTD-2025R1-520422

PATIENT
  Age: 95 Year
  Sex: Male

DRUGS (2)
  1. IRON SUCROSE [Interacting]
     Active Substance: IRON SUCROSE
     Indication: Iron deficiency anaemia
     Route: 065
  2. DENOSUMAB [Interacting]
     Active Substance: DENOSUMAB
     Indication: Osteoporosis
     Route: 065

REACTIONS (2)
  - Hypocalcaemia [Recovered/Resolved]
  - Drug interaction [Unknown]
